FAERS Safety Report 6010039-0 (Version None)
Quarter: 2008Q4

REPORT INFORMATION
  Report Type: 
  Country: None (occurrence: None)
  Receive Date: 20081218
  Receipt Date: 20081215
  Transmission Date: 20090506
  Serious: Yes (Hospitalization)
  Sender: FDA-Public Use
  Company Number: FR-WYE-G02791208

PATIENT
  Sex: Female
  Weight: 61 kg

DRUGS (2)
  1. TORISEL [Suspect]
     Dosage: 25 MG EVERY 1 CYC
     Route: 042
     Dates: start: 20080623, end: 20081201
  2. AVASTIN [Suspect]
     Dosage: 640 MG EVERY 1 CYC
     Route: 042
     Dates: start: 20080623, end: 20081201

REACTIONS (1)
  - RECTAL HAEMORRHAGE [None]
